FAERS Safety Report 19880745 (Version 1)
Quarter: 2021Q3

REPORT INFORMATION
  Report Type: Spontaneous
  Country: CA (occurrence: CA)
  Receive Date: 20210925
  Receipt Date: 20210925
  Transmission Date: 20211014
  Serious: Yes (Death, Life-Threatening, Other)
  Sender: FDA-Public Use
  Company Number: CA-SA-2021SA314474

PATIENT
  Age: 67 Year
  Sex: Male
  Weight: 81 kg

DRUGS (1)
  1. FASTURTEC [Suspect]
     Active Substance: RASBURICASE
     Indication: TUMOUR LYSIS SYNDROME
     Dosage: 3 MG, QD
     Route: 042

REACTIONS (4)
  - Death [Fatal]
  - Depressed level of consciousness [Fatal]
  - Blood uric acid increased [Fatal]
  - Acute lymphocytic leukaemia recurrent [Fatal]
